FAERS Safety Report 11150621 (Version 1)
Quarter: 2015Q2

REPORT INFORMATION
  Report Type: Spontaneous
  Country: US (occurrence: US)
  Receive Date: 20150601
  Receipt Date: 20150601
  Transmission Date: 20150821
  Serious: No
  Sender: FDA-Public Use
  Company Number: US-AMGEN-USASP2015052433

PATIENT
  Age: 1 Year
  Sex: Female

DRUGS (4)
  1. ENBREL [Suspect]
     Active Substance: ETANERCEPT
     Indication: HYPOGAMMAGLOBULINAEMIA
  2. ENBREL [Suspect]
     Active Substance: ETANERCEPT
     Indication: FAILURE TO THRIVE
  3. ENBREL [Suspect]
     Active Substance: ETANERCEPT
     Indication: SIDEROBLASTIC ANAEMIA
     Dosage: 25 MG, UNK
     Route: 065
     Dates: start: 201504
  4. ENBREL [Suspect]
     Active Substance: ETANERCEPT
     Indication: PYREXIA

REACTIONS (1)
  - Off label use [Not Recovered/Not Resolved]

NARRATIVE: CASE EVENT DATE: 201504
